FAERS Safety Report 10271935 (Version 2)
Quarter: 2014Q3

REPORT INFORMATION
  Report Type: Report from Study
  Country: BR (occurrence: BR)
  Receive Date: 20140702
  Receipt Date: 20140702
  Transmission Date: 20150326
  Serious: Yes (Hospitalization, Other)
  Sender: FDA-Public Use
  Company Number: PHHY2014BR049186

PATIENT
  Sex: Female
  Weight: 78 kg

DRUGS (5)
  1. CENTRUM [Concomitant]
     Active Substance: VITAMINS
     Indication: SUPPLEMENTATION THERAPY
     Dosage: 1 DF, DAILY
     Route: 048
     Dates: start: 201309
  2. DIOVAN HCT [Suspect]
     Active Substance: HYDROCHLOROTHIAZIDE\VALSARTAN
     Indication: ARTERIAL DISORDER
  3. DIOVAN HCT [Suspect]
     Active Substance: HYDROCHLOROTHIAZIDE\VALSARTAN
     Indication: HYPERTENSION
     Dosage: 1 DF (80 MG VALS/ 12.5 MG HYDR) DAILY
     Route: 048
  4. FRONTAL [Concomitant]
     Active Substance: ALPRAZOLAM
     Indication: SLEEP DISORDER
     Dosage: 1 DF, DAILY
     Route: 048
  5. DAFLON (DIOSMIN) [Concomitant]
     Active Substance: DIOSMIN
     Indication: CARDIOVASCULAR DISORDER
     Dosage: 1 DF, DAILY
     Route: 048
     Dates: start: 201402

REACTIONS (11)
  - Diabetes mellitus [Recovering/Resolving]
  - Weight decreased [Recovering/Resolving]
  - Uterine cancer [Recovered/Resolved]
  - Labyrinthitis [Recovering/Resolving]
  - Blood uric acid increased [Unknown]
  - Anaemia [Not Recovered/Not Resolved]
  - Diverticulitis [Unknown]
  - Hypothyroidism [Not Recovered/Not Resolved]
  - Blood cholesterol increased [Unknown]
  - Depression [Unknown]
  - Hypotension [Recovering/Resolving]

NARRATIVE: CASE EVENT DATE: 2009
